FAERS Safety Report 12211473 (Version 1)
Quarter: 2016Q1

REPORT INFORMATION
  Report Type: Spontaneous
  Country: CH (occurrence: CH)
  Receive Date: 20160325
  Receipt Date: 20160325
  Transmission Date: 20160526
  Serious: Yes (Hospitalization)
  Sender: FDA-Public Use
  Company Number: CH-TEVA-645161ISR

PATIENT
  Age: 65 Year
  Sex: Female

DRUGS (9)
  1. COMILORID-MEPHA 5/50 [Suspect]
     Active Substance: AMILORIDE HYDROCHLORIDE\HYDROCHLOROTHIAZIDE
     Indication: HYPERTENSION
     Dosage: 1 DOSAGE FORMS DAILY; 1 DF = 5 MG AMILORIDE + 50 MG HYDROCHLOROTHIAZIDE
     Route: 065
     Dates: start: 2010, end: 20160212
  2. IMOVANE [Concomitant]
     Active Substance: ZOPICLONE
     Dosage: 7.5 MILLIGRAM DAILY; STRENGTH 7.5MG, 0-0-0-1
     Route: 065
  3. MOTILIUM [Interacting]
     Active Substance: DOMPERIDONE
     Dosage: 30 MILLIGRAM DAILY; 1-1-1
     Route: 065
     Dates: start: 2015
  4. DAFALGAN [Concomitant]
     Active Substance: ACETAMINOPHEN
     Dosage: 1000 MILLIGRAM DAILY; STRENGTH 500MG, 1-0-1
     Route: 065
  5. TEMESTA [Concomitant]
     Active Substance: LORAZEPAM
     Dosage: 5 MILLIGRAM DAILY; STRENGTH 2.5 MG, 1-0-0-1
     Route: 065
  6. DIPIPERON [Concomitant]
     Active Substance: PIPAMPERONE
     Dosage: 40 MILLIGRAM DAILY; STRENGTH 40MG, 0-0-0-1
     Route: 065
  7. NOPIL FORTE 800/160 [Concomitant]
     Dosage: 2 DOSAGE FORMS DAILY; 1 DF = 800 MG OF SULFAMETHOXAZOLE + 160 MG TRIMETHOPRIM
     Route: 065
     Dates: end: 20160213
  8. XARELTO [Interacting]
     Active Substance: RIVAROXABAN
     Indication: DEEP VEIN THROMBOSIS POSTOPERATIVE
     Dosage: 20 MILLIGRAM DAILY; STRENGTH 10 MG, 2-0-0
     Route: 065
     Dates: start: 201501, end: 20160212
  9. RISPERDAL [Concomitant]
     Active Substance: RISPERIDONE
     Dosage: 6 MILLIGRAM DAILY; STRENGTH 1 MG
     Route: 065

REACTIONS (3)
  - Upper gastrointestinal haemorrhage [Recovered/Resolved]
  - Iron deficiency anaemia [Recovering/Resolving]
  - Potentiating drug interaction [Recovered/Resolved]

NARRATIVE: CASE EVENT DATE: 20160211
